FAERS Safety Report 10365888 (Version 1)
Quarter: 2014Q3

REPORT INFORMATION
  Report Type: Spontaneous
  Country: GR (occurrence: GR)
  Receive Date: 20140806
  Receipt Date: 20140806
  Transmission Date: 20150326
  Serious: Yes (Other)
  Sender: FDA-Public Use
  Company Number: GR-BAYER-2014-113192

PATIENT
  Age: 33 Year
  Sex: Female

DRUGS (1)
  1. CIPROXIN [Suspect]
     Active Substance: CIPROFLOXACIN
     Indication: GASTROENTERITIS
     Dosage: 500 MG, BID
     Route: 048
     Dates: start: 20140717, end: 20140720

REACTIONS (8)
  - Suicidal ideation [Recovering/Resolving]
  - Mental disorder [Recovering/Resolving]
  - Hypoaesthesia [Recovering/Resolving]
  - Hallucination [Recovering/Resolving]
  - Abdominal pain upper [Recovering/Resolving]
  - Aphagia [Recovering/Resolving]
  - Abdominal discomfort [Recovering/Resolving]
  - Insomnia [Recovering/Resolving]

NARRATIVE: CASE EVENT DATE: 20140718
